FAERS Safety Report 7043942-3 (Version None)
Quarter: 2010Q4

REPORT INFORMATION
  Report Type: 
  Country: None (occurrence: None)
  Receive Date: 20101008
  Receipt Date: 20101008
  Transmission Date: 20110411
  Serious: Yes (Hospitalization)
  Sender: FDA-Public Use
  Company Number: None

PATIENT
  Age: 68 Year
  Sex: Female
  Weight: 82.1011 kg

DRUGS (4)
  1. CAPECITABINE [Suspect]
     Indication: COLON CANCER
     Dosage: 3900 MG QD DAYS 1-14 PO
     Route: 048
     Dates: start: 20100728, end: 20100801
  2. YTTRIUM 90 MICROSPHERES [Suspect]
     Indication: METASTASES TO LIVER
     Dates: start: 20100820, end: 20100820
  3. DULCOLAX [Concomitant]
  4. LEXAPRO [Concomitant]

REACTIONS (10)
  - COELIAC DISEASE [None]
  - DECREASED APPETITE [None]
  - DEHYDRATION [None]
  - DIARRHOEA [None]
  - ELECTROLYTE DEPLETION [None]
  - HYPOPHAGIA [None]
  - NAUSEA [None]
  - THERAPEUTIC RESPONSE DECREASED [None]
  - VOMITING [None]
  - WEIGHT DECREASED [None]
